FAERS Safety Report 4654585-0 (Version None)
Quarter: 2005Q2

REPORT INFORMATION
  Report Type: 
  Country: None (occurrence: None)
  Receive Date: 20050504
  Receipt Date: 20050504
  Transmission Date: 20051028
  Serious: Yes (Hospitalization)
  Sender: FDA-Public Use
  Company Number: None

PATIENT
  Age: 66 Year
  Sex: Female
  Weight: 37 kg

DRUGS (5)
  1. DILANTIN [Suspect]
     Indication: CONVULSION
     Dosage: 500 MG DAILY ORAL
     Route: 048
     Dates: start: 20040101, end: 20041128
  2. FERROUS SULFATE TAB [Concomitant]
  3. HYDROCHLOROTHIAZIDE [Concomitant]
  4. ALPRAZOLAM [Concomitant]
  5. MACRODANIN [Concomitant]

REACTIONS (5)
  - CONVULSION [None]
  - DRUG TOXICITY [None]
  - MUSCLE SPASMS [None]
  - URINARY TRACT INFECTION [None]
  - WEIGHT DECREASED [None]
